FAERS Safety Report 5604555-0 (Version None)
Quarter: 2008Q1

REPORT INFORMATION
  Report Type: 
  Country: None (occurrence: None)
  Receive Date: 20080124
  Receipt Date: 20080124
  Transmission Date: 20080703
  Serious: Yes (Life-Threatening, Hospitalization, Other)
  Sender: FDA-Public Use
  Company Number: None

PATIENT
  Age: 56 Year
  Sex: Male
  Weight: 68.9467 kg

DRUGS (1)
  1. LAMIVUDINE [Suspect]
     Indication: HIV INFECTION
     Dosage: 1 BID PO
     Route: 048
     Dates: start: 20020101, end: 20070101

REACTIONS (6)
  - ASPHYXIA [None]
  - DRUG TOXICITY [None]
  - ILL-DEFINED DISORDER [None]
  - INJURY [None]
  - MITOCHONDRIAL DNA DEPLETION [None]
  - RESPIRATORY FAILURE [None]
